FAERS Safety Report 13502797 (Version 1)
Quarter: 2017Q2

REPORT INFORMATION
  Report Type: Spontaneous
  Country: US (occurrence: US)
  Receive Date: 20170501
  Receipt Date: 20170501
  Transmission Date: 20170830
  Serious: No
  Sender: FDA-Public Use
  Company Number: None

PATIENT
  Age: 62 Year
  Sex: Female

DRUGS (12)
  1. PAXIL [Concomitant]
     Active Substance: PAROXETINE HYDROCHLORIDE
  2. LINZESS [Concomitant]
     Active Substance: LINACLOTIDE
  3. LITHIUM. [Concomitant]
     Active Substance: LITHIUM
  4. FLUOXETINE [Concomitant]
     Active Substance: FLUOXETINE HYDROCHLORIDE
  5. COPAXONE [Suspect]
     Active Substance: GLATIRAMER ACETATE
     Indication: MULTIPLE SCLEROSIS
     Route: 058
     Dates: start: 20160329
  6. COD LIVER [Concomitant]
     Active Substance: COD LIVER OIL
  7. LEVOTHYROXIN [Concomitant]
     Active Substance: LEVOTHYROXINE
  8. MAGNESIUM [Concomitant]
     Active Substance: MAGNESIUM
  9. ASPIRIN. [Concomitant]
     Active Substance: ASPIRIN
  10. RISPERIDONE. [Concomitant]
     Active Substance: RISPERIDONE
  11. COLACE [Concomitant]
     Active Substance: DOCUSATE SODIUM
  12. LITHIUM. [Concomitant]
     Active Substance: LITHIUM

REACTIONS (2)
  - Mobility decreased [None]
  - Gait disturbance [None]

NARRATIVE: CASE EVENT DATE: 201704
